FAERS Safety Report 6982387-9 (Version None)
Quarter: 2010Q3

REPORT INFORMATION
  Report Type: 
  Country: None (occurrence: None)
  Receive Date: 20100914
  Receipt Date: 20100119
  Transmission Date: 20110219
  Serious: No
  Sender: FDA-Public Use
  Company Number: US-PFIZER INC-2010007975

PATIENT
  Sex: Male

DRUGS (3)
  1. LYRICA [Suspect]
     Indication: PRURITUS
     Dosage: UNK
     Dates: start: 20090701
  2. PEGASYS [Suspect]
     Indication: HEPATITIS C
     Dosage: 180 UG, WEEKLY
     Dates: start: 20091019
  3. RIBAVIRIN [Suspect]
     Indication: HEPATITIS C
     Dosage: 1000 MG, DAILY
     Dates: start: 20091019

REACTIONS (4)
  - ABDOMINAL PAIN [None]
  - FULL BLOOD COUNT DECREASED [None]
  - HYPERSOMNIA [None]
  - SENSORY DISTURBANCE [None]
